FAERS Safety Report 10453441 (Version 1)
Quarter: 2014Q3

REPORT INFORMATION
  Report Type: Report from Study
  Country: FR (occurrence: FR)
  Receive Date: 20140915
  Receipt Date: 20140915
  Transmission Date: 20150326
  Serious: Yes (Other)
  Sender: FDA-Public Use
  Company Number: FR-MYLANLABS-2014M1004387

PATIENT

DRUGS (8)
  1. METHOTREXATE [Suspect]
     Active Substance: METHOTREXATE
     Indication: GESTATIONAL TROPHOBLASTIC TUMOUR
     Route: 065
  2. VINCRISTINE [Suspect]
     Active Substance: VINCRISTINE
     Indication: GESTATIONAL TROPHOBLASTIC TUMOUR
     Route: 065
  3. CISPLATIN. [Suspect]
     Active Substance: CISPLATIN
     Indication: GESTATIONAL TROPHOBLASTIC TUMOUR
     Dosage: 100 MG/M2/DAY ON DAY 1
     Route: 065
  4. DACTINOMYCIN [Suspect]
     Active Substance: DACTINOMYCIN
     Indication: GESTATIONAL TROPHOBLASTIC TUMOUR
     Dosage: 0.3 MG/M2/DAY ON DAY 1-3
     Route: 065
  5. DACTINOMYCIN [Suspect]
     Active Substance: DACTINOMYCIN
     Route: 065
  6. ETOPOSIDE. [Suspect]
     Active Substance: ETOPOSIDE
     Dosage: 200 MG/M2/2 WEEKS
     Route: 065
  7. ETOPOSIDE. [Suspect]
     Active Substance: ETOPOSIDE
     Indication: GESTATIONAL TROPHOBLASTIC TUMOUR
     Dosage: 300 MG/M2/3WEEKS
     Route: 065
  8. CYCLOPHOSPHAMIDE. [Suspect]
     Active Substance: CYCLOPHOSPHAMIDE
     Indication: GESTATIONAL TROPHOBLASTIC TUMOUR
     Route: 065

REACTIONS (2)
  - Acute myeloid leukaemia [Unknown]
  - Ototoxicity [Unknown]
